FAERS Safety Report 19769476 (Version 1)
Quarter: 2021Q3

REPORT INFORMATION
  Report Type: Spontaneous
  Country: IE (occurrence: IE)
  Receive Date: 20210831
  Receipt Date: 20210831
  Transmission Date: 20211014
  Serious: Yes (Hospitalization)
  Sender: FDA-Public Use
  Company Number: IE-MYLANLABS-2021M1056876

PATIENT
  Age: 52 Year
  Sex: Female

DRUGS (2)
  1. EPINEPHRINE. [Suspect]
     Active Substance: EPINEPHRINE
     Indication: STRIDOR
     Dosage: RACEMIC EPINEPHRINE NEBULISATION
     Route: 045
  2. BACLOFEN. [Suspect]
     Active Substance: BACLOFEN
     Indication: MULTIPLE SCLEROSIS
     Route: 065

REACTIONS (3)
  - Drug ineffective [Unknown]
  - Overdose [Recovered/Resolved]
  - Off label use [Unknown]
